FAERS Safety Report 7423720-3 (Version None)
Quarter: 2011Q1

REPORT INFORMATION
  Report Type: 
  Country: None (occurrence: None)
  Receive Date: 20110302
  Receipt Date: 20110113
  Transmission Date: 20110831
  Serious: No
  Sender: FDA-Public Use
  Company Number: 025409

PATIENT
  Sex: Female

DRUGS (2)
  1. CIMZIA [Suspect]
     Indication: CROHN'S DISEASE
     Dosage: (SUBCUTANEOUS) (SUBCUTANEOUS)
     Route: 058
     Dates: start: 20110106
  2. CIMZIA [Suspect]
     Indication: CROHN'S DISEASE
     Dosage: (SUBCUTANEOUS) (SUBCUTANEOUS)
     Route: 058
     Dates: start: 20091210, end: 20101201

REACTIONS (3)
  - INFECTION [None]
  - PARAESTHESIA [None]
  - DRUG DOSE OMISSION [None]
